FAERS Safety Report 6898348-4 (Version None)
Quarter: 2010Q3

REPORT INFORMATION
  Report Type: 
  Country: None (occurrence: None)
  Receive Date: 20100802
  Receipt Date: 20071016
  Transmission Date: 20110219
  Serious: No
  Sender: FDA-Public Use
  Company Number: US-PFIZER INC-2007011339

PATIENT
  Sex: Male
  Weight: 81.6 kg

DRUGS (2)
  1. LYRICA [Suspect]
     Indication: NEURALGIA
     Dosage: 4 CAPSULES OF 25MG EACH
     Dates: start: 20070101
  2. CELEBREX [Suspect]
     Indication: NERVE COMPRESSION
     Dates: start: 20070101

REACTIONS (2)
  - DRUG INEFFECTIVE [None]
  - MALAISE [None]
